FAERS Safety Report 22096547 (Version 1)
Quarter: 2023Q1

REPORT INFORMATION
  Report Type: Spontaneous
  Country: US (occurrence: None)
  Receive Date: 20230315
  Receipt Date: 20230315
  Transmission Date: 20230418
  Serious: No
  Sender: FDA-Public Use
  Company Number: 2023A051648

PATIENT
  Age: 912 Month
  Sex: Female
  Weight: 62.1 kg

DRUGS (2)
  1. BYDUREON BCISE [Suspect]
     Active Substance: EXENATIDE
     Indication: Diabetes mellitus
     Route: 058
  2. BYETTA [Suspect]
     Active Substance: EXENATIDE
     Indication: Diabetes mellitus

REACTIONS (3)
  - Injection site pain [Unknown]
  - Device use issue [Unknown]
  - Extra dose administered [Unknown]

NARRATIVE: CASE EVENT DATE: 20230201
